FAERS Safety Report 11642061 (Version 1)
Quarter: 2015Q4

REPORT INFORMATION
  Report Type: Spontaneous
  Country: US (occurrence: US)
  Receive Date: 20151019
  Receipt Date: 20151019
  Transmission Date: 20160304
  Serious: No
  Sender: FDA-Public Use
  Company Number: US-009507513-1510USA001841

PATIENT
  Age: 33 Year
  Sex: Female
  Weight: 117.91 kg

DRUGS (1)
  1. NEXPLANON [Suspect]
     Active Substance: ETONOGESTREL
     Dosage: UNK
     Route: 059
     Dates: start: 20150924, end: 20151002

REACTIONS (4)
  - Device expulsion [Unknown]
  - Feeling hot [Unknown]
  - Local swelling [Unknown]
  - Erythema [Unknown]

NARRATIVE: CASE EVENT DATE: 20150929
